FAERS Safety Report 6259619-8 (Version None)
Quarter: 2009Q3

REPORT INFORMATION
  Report Type: 
  Country: None (occurrence: None)
  Receive Date: 20090708
  Receipt Date: 20090701
  Transmission Date: 20100115
  Serious: No
  Sender: FDA-Public Use
  Company Number: US-JNJFOC-20090700903

PATIENT
  Sex: Female
  Weight: 67.13 kg

DRUGS (8)
  1. DURAGESIC-100 [Suspect]
     Indication: BACK PAIN
     Route: 062
  2. ANTIHYPERTENSIVE [Concomitant]
     Indication: BLOOD PRESSURE
     Route: 065
  3. PROTONIX [Concomitant]
     Indication: GASTROOESOPHAGEAL REFLUX DISEASE
     Dosage: DAILY
     Route: 048
  4. ANTIALLERGIC DRUGS [Concomitant]
     Indication: MULTIPLE ALLERGIES
     Route: 065
  5. VALIUM [Concomitant]
     Indication: NEUROPATHY PERIPHERAL
     Route: 048
  6. ROBAXIN [Concomitant]
     Indication: MUSCLE SPASMS
     Dosage: 4 TIMES DAILY AS NEEDED
     Route: 048
  7. NEURONTIN [Concomitant]
     Indication: NERVE INJURY
     Dosage: 300 MG 2 IN AM AND 2 IN PM
     Route: 048
  8. VICODIN [Concomitant]
     Indication: PAIN
     Dosage: 15-325 2 TO FOUR TIMES A DAY
     Route: 048

REACTIONS (1)
  - WRONG TECHNIQUE IN DRUG USAGE PROCESS [None]
